FAERS Safety Report 24607089 (Version 1)
Quarter: 2024Q4

REPORT INFORMATION
  Report Type: Spontaneous
  Country: US (occurrence: None)
  Receive Date: 20241108
  Receipt Date: 20241108
  Transmission Date: 20250115
  Serious: Yes (Hospitalization)
  Sender: Public
  Company Number: None

PATIENT
  Age: 71 Year
  Sex: Male
  Weight: 89 kg

DRUGS (4)
  1. DOXYCYCLINE HYCLATE [Suspect]
     Active Substance: DOXYCYCLINE HYCLATE
     Indication: Atypical pneumonia
     Dosage: FREQUENCY : TWICE A DAY;?
     Route: 048
     Dates: start: 20240702, end: 20240707
  2. FLUOCINONIDE [Suspect]
     Active Substance: FLUOCINONIDE
  3. OXYBUTYNIN [Suspect]
     Active Substance: OXYBUTYNIN
  4. TERBINAFINE [Suspect]
     Active Substance: TERBINAFINE\TERBINAFINE HYDROCHLORIDE

REACTIONS (9)
  - Confusional state [None]
  - Delirium [None]
  - Dizziness [None]
  - Hallucination [None]
  - Memory impairment [None]
  - Oropharyngeal swelling [None]
  - Encephalopathy [None]
  - Pulmonary embolism [None]
  - SARS-CoV-2 test positive [None]

NARRATIVE: CASE EVENT DATE: 20240708
